FAERS Safety Report 6927752-0 (Version None)
Quarter: 2010Q3

REPORT INFORMATION
  Report Type: 
  Country: None (occurrence: None)
  Receive Date: 20100817
  Receipt Date: 20100630
  Transmission Date: 20110219
  Serious: No
  Sender: FDA-Public Use
  Company Number: US-BAYER-201017738BCC

PATIENT
  Age: 88 Year
  Sex: Male
  Weight: 94 kg

DRUGS (3)
  1. ALEVE (CAPLET) [Suspect]
     Indication: ARTHRITIS
     Dosage: TOTAL DAILY DOSE: 220 MG  UNIT DOSE: 220 MG
     Route: 048
     Dates: start: 20100101
  2. NIACIN [Concomitant]
  3. FISH OIL [Concomitant]

REACTIONS (1)
  - ARTHRALGIA [None]
